FAERS Safety Report 13134381 (Version 1)
Quarter: 2017Q1

REPORT INFORMATION
  Report Type: Spontaneous
  Country: US (occurrence: US)
  Receive Date: 20170120
  Receipt Date: 20170120
  Transmission Date: 20170428
  Serious: No
  Sender: FDA-Public Use
  Company Number: US-PFIZER INC-2017022537

PATIENT
  Sex: Female

DRUGS (2)
  1. XELJANZ XR [Suspect]
     Active Substance: TOFACITINIB CITRATE
     Indication: RHEUMATOID ARTHRITIS
     Dosage: 11 MG, DAILY
  2. REMICADE [Concomitant]
     Active Substance: INFLIXIMAB

REACTIONS (11)
  - Hair growth abnormal [Unknown]
  - Therapeutic response unexpected [Unknown]
  - Musculoskeletal stiffness [Unknown]
  - Feeling cold [Unknown]
  - Neck pain [Unknown]
  - Contusion [Unknown]
  - Arthralgia [Unknown]
  - Fatigue [Unknown]
  - Pain [Unknown]
  - Body mass index decreased [Unknown]
  - Condition aggravated [Unknown]
